FAERS Safety Report 20702276 (Version 1)
Quarter: 2022Q2

REPORT INFORMATION
  Report Type: Spontaneous
  Country: AU (occurrence: AU)
  Receive Date: 20220412
  Receipt Date: 20220412
  Transmission Date: 20220721
  Serious: Yes (Other)
  Sender: FDA-Public Use
  Company Number: AU-BAYER-2022A047562

PATIENT
  Sex: Female

DRUGS (1)
  1. NAPROXEN SODIUM [Suspect]
     Active Substance: NAPROXEN SODIUM
     Indication: Dysmenorrhoea
     Dosage: UNK

REACTIONS (8)
  - Gastritis erosive [None]
  - Cardiac flutter [None]
  - Haemangioma of skin [None]
  - Abdominal pain upper [None]
  - Haemoptysis [None]
  - Hiccups [None]
  - Cough [None]
  - Cold sweat [None]
